FAERS Safety Report 12514611 (Version 1)
Quarter: 2016Q2

REPORT INFORMATION
  Report Type: Spontaneous
  Country: US (occurrence: US)
  Receive Date: 20160630
  Receipt Date: 20160630
  Transmission Date: 20160815
  Serious: Yes (Other)
  Sender: FDA-Public Use
  Company Number: US-JNJFOC-20160517943

PATIENT
  Age: 81 Year
  Sex: Male

DRUGS (10)
  1. FLUTICASONE PROPIONATE. [Concomitant]
     Active Substance: FLUTICASONE PROPIONATE
     Indication: RHINITIS ALLERGIC
     Route: 045
     Dates: start: 20150928
  2. FEXOFENADINE HCL [Concomitant]
     Active Substance: FEXOFENADINE HYDROCHLORIDE
     Indication: RHINITIS ALLERGIC
     Route: 065
     Dates: start: 20160317
  3. ONE A DAY MENS [Concomitant]
     Active Substance: VITAMINS
     Indication: GENERAL SYMPTOM
     Route: 065
     Dates: start: 20150108
  4. AMLODIPINE BESYLATE. [Concomitant]
     Active Substance: AMLODIPINE BESYLATE
     Route: 065
     Dates: start: 20150827
  5. ONE A DAY MENS [Concomitant]
     Active Substance: VITAMINS
     Indication: DIZZINESS
     Route: 065
     Dates: start: 20150108
  6. XARELTO [Suspect]
     Active Substance: RIVAROXABAN
     Indication: DEEP VEIN THROMBOSIS
     Route: 048
     Dates: start: 20160510
  7. ONE A DAY MENS [Concomitant]
     Active Substance: VITAMINS
     Indication: DIZZINESS
     Route: 065
     Dates: start: 20150108
  8. PANTOPRAZOLE SODIUM. [Concomitant]
     Active Substance: PANTOPRAZOLE SODIUM
     Route: 065
     Dates: start: 20150827
  9. LOSARTAN POTASSIUM. [Concomitant]
     Active Substance: LOSARTAN POTASSIUM
     Route: 065
     Dates: start: 20150827
  10. PRAVASTATIN SODIUM. [Concomitant]
     Active Substance: PRAVASTATIN SODIUM
     Indication: TYPE V HYPERLIPIDAEMIA
     Route: 065
     Dates: start: 20151119

REACTIONS (1)
  - Gastrointestinal haemorrhage [Recovering/Resolving]
